FAERS Safety Report 13004529 (Version 1)
Quarter: 2016Q4

REPORT INFORMATION
  Report Type: Spontaneous
  Country: CA (occurrence: CA)
  Receive Date: 20161207
  Receipt Date: 20161207
  Transmission Date: 20170207
  Serious: Yes (Other)
  Sender: FDA-Public Use
  Company Number: CA-ROCHE-1862072

PATIENT
  Sex: Male
  Weight: 95.5 kg

DRUGS (12)
  1. CRESTOR [Concomitant]
     Active Substance: ROSUVASTATIN CALCIUM
     Route: 048
  2. NIASPAN [Concomitant]
     Active Substance: NIACIN
  3. INFLECTRA [Suspect]
     Active Substance: INFLIXIMAB-DYYB
     Indication: PSORIATIC ARTHROPATHY
     Dosage: THEN EVERY 6 WEEKS FOR 12 MONTHS
     Route: 042
     Dates: start: 20160720
  4. PLAVIX [Concomitant]
     Active Substance: CLOPIDOGREL BISULFATE
     Route: 048
  5. NITRO PATCH [Concomitant]
     Active Substance: NITROGLYCERIN
     Route: 062
  6. TYLENOL [Concomitant]
     Active Substance: ACETAMINOPHEN
     Route: 048
  7. EZETROL [Concomitant]
     Active Substance: EZETIMIBE
     Route: 048
  8. HUMIRA [Suspect]
     Active Substance: ADALIMUMAB
     Indication: PRODUCT USED FOR UNKNOWN INDICATION
     Route: 065
  9. ASPIRIN. [Concomitant]
     Active Substance: ASPIRIN
     Route: 065
  10. SIMPONI [Suspect]
     Active Substance: GOLIMUMAB
     Indication: PRODUCT USED FOR UNKNOWN INDICATION
     Route: 065
  11. ENBREL [Suspect]
     Active Substance: ETANERCEPT
     Indication: PRODUCT USED FOR UNKNOWN INDICATION
     Route: 065
  12. ACTEMRA [Suspect]
     Active Substance: TOCILIZUMAB
     Indication: PRODUCT USED FOR UNKNOWN INDICATION
     Route: 065

REACTIONS (9)
  - Headache [Unknown]
  - Cardiac disorder [Unknown]
  - Blood pressure increased [Unknown]
  - Hypercholesterolaemia [Unknown]
  - Diarrhoea [Unknown]
  - Impaired work ability [Unknown]
  - Drug ineffective [Unknown]
  - Therapy non-responder [Unknown]
  - Pain [Unknown]
